FAERS Safety Report 13337228 (Version 2)
Quarter: 2017Q2

REPORT INFORMATION
  Report Type: Spontaneous
  Country: US (occurrence: US)
  Receive Date: 20170315
  Receipt Date: 20170421
  Transmission Date: 20170830
  Serious: No
  Sender: FDA-Public Use
  Company Number: US-PFIZER INC-2017106648

PATIENT
  Age: 70 Year
  Sex: Female

DRUGS (1)
  1. IBRANCE [Suspect]
     Active Substance: PALBOCICLIB
     Indication: BONE CANCER
     Dosage: 20 MG, UNK
     Dates: start: 201702

REACTIONS (3)
  - Speech disorder [Unknown]
  - Vocal cord disorder [Unknown]
  - Product use in unapproved indication [Unknown]
